FAERS Safety Report 5839092-1 (Version None)
Quarter: 2008Q3

REPORT INFORMATION
  Report Type: 
  Country: None (occurrence: None)
  Receive Date: 20080808
  Receipt Date: 20080731
  Transmission Date: 20090109
  Serious: Yes (Other)
  Sender: FDA-Public Use
  Company Number: GB-PFIZER INC-2006051538

PATIENT
  Sex: Male
  Weight: 82 kg

DRUGS (6)
  1. SU-011,248 [Suspect]
     Indication: COLON CANCER METASTATIC
     Route: 048
  2. SU-011,248 [Suspect]
  3. IRINOTECAN HCL [Suspect]
     Indication: COLON CANCER METASTATIC
     Route: 042
  4. FLUOROURACIL [Suspect]
     Indication: COLON CANCER METASTATIC
     Route: 042
  5. FLUOROURACIL [Suspect]
     Route: 042
  6. LEUCOVORIN CALCIUM [Suspect]
     Indication: COLON CANCER METASTATIC
     Route: 042

REACTIONS (2)
  - DRUG INTERACTION [None]
  - NEUTROPENIA [None]
